FAERS Safety Report 6690221-X (Version None)
Quarter: 2010Q2

REPORT INFORMATION
  Report Type: 
  Country: None (occurrence: None)
  Receive Date: 20100421
  Receipt Date: 20100412
  Transmission Date: 20101027
  Serious: Yes (Other)
  Sender: FDA-Public Use
  Company Number: JP-ROCHE-608642

PATIENT
  Sex: Female
  Weight: 45 kg

DRUGS (5)
  1. TOCILIZUMAB [Suspect]
     Indication: RHEUMATOID ARTHRITIS
     Dosage: DOSAGE: 360 MG/ 45 KG
     Route: 041
     Dates: start: 20080627, end: 20080627
  2. METHOTREXATE [Suspect]
     Indication: RHEUMATOID ARTHRITIS
     Route: 048
     Dates: end: 20080725
  3. ACTARIT [Concomitant]
     Dosage: DRUG REPORTED AS:ORCL(ACTARIT)
     Route: 048
  4. PREDNISOLONE [Concomitant]
     Dosage: FORM: PERORAL AGENT
     Route: 048
  5. FOLIC ACID [Concomitant]
     Dosage: FORM: PERORAL AGENT
     Route: 048
     Dates: end: 20080725

REACTIONS (1)
  - WHITE BLOOD CELL COUNT DECREASED [None]
